FAERS Safety Report 4306969-8 (Version None)
Quarter: 2004Q1

REPORT INFORMATION
  Report Type: 
  Country: None (occurrence: None)
  Receive Date: 20040225
  Receipt Date: 20040219
  Transmission Date: 20041129
  Serious: Yes (Hospitalization)
  Sender: FDA-Public Use
  Company Number: 2004-02-1286

PATIENT
  Age: 38 Year
  Sex: Female

DRUGS (1)
  1. AERIUS (DESLORATADINE) TABLETS   LIKE CLARINEX [Suspect]
     Indication: HYPERSENSITIVITY
     Dosage: 5 MG QD ORAL
     Route: 048
     Dates: start: 20040201, end: 20040217

REACTIONS (1)
  - VENTRICULAR EXTRASYSTOLES [None]
